FAERS Safety Report 7645261-0 (Version None)
Quarter: 2011Q3

REPORT INFORMATION
  Report Type: 
  Country: None (occurrence: None)
  Receive Date: 20110729
  Receipt Date: 20110629
  Transmission Date: 20111222
  Serious: No
  Sender: FDA-Public Use
  Company Number: US-BAYER-2011-058771

PATIENT
  Sex: Male
  Weight: 86 kg

DRUGS (3)
  1. PANTOPRAZOLE SODIUM [Concomitant]
  2. ALEVE (CAPLET) [Suspect]
     Dosage: LIQUID GELS
     Route: 048
  3. ALEVE (CAPLET) [Suspect]
     Dosage: TABLETS
     Route: 048

REACTIONS (2)
  - NAUSEA [None]
  - ABDOMINAL PAIN UPPER [None]
